FAERS Safety Report 19733357 (Version 1)
Quarter: 2021Q3

REPORT INFORMATION
  Report Type: Spontaneous
  Country: IL (occurrence: IL)
  Receive Date: 20210823
  Receipt Date: 20210823
  Transmission Date: 20211014
  Serious: Yes (Other)
  Sender: FDA-Public Use
  Company Number: IL-LUPIN PHARMACEUTICALS INC.-2021-15569

PATIENT
  Age: 62 Year
  Sex: Female

DRUGS (7)
  1. BENZYDAMINE [Suspect]
     Active Substance: BENZYDAMINE
     Indication: CHRONIC GRAFT VERSUS HOST DISEASE ORAL
     Dosage: UNK
     Route: 061
  2. FLUTICASONE. [Suspect]
     Active Substance: FLUTICASONE
     Indication: CHRONIC GRAFT VERSUS HOST DISEASE ORAL
     Dosage: UNK
     Route: 061
  3. PREDNISONE. [Suspect]
     Active Substance: PREDNISONE
     Indication: CHRONIC GRAFT VERSUS HOST DISEASE ORAL
     Dosage: UNK
     Route: 061
  4. LIGNOCAINE [Suspect]
     Active Substance: LIDOCAINE HYDROCHLORIDE
     Indication: CHRONIC GRAFT VERSUS HOST DISEASE ORAL
     Dosage: UNK
     Route: 061
  5. CLOBETASOL [Suspect]
     Active Substance: CLOBETASOL
     Indication: CHRONIC GRAFT VERSUS HOST DISEASE ORAL
     Dosage: UNK
     Route: 061
  6. DEXAMETHASONE. [Suspect]
     Active Substance: DEXAMETHASONE
     Indication: CHRONIC GRAFT VERSUS HOST DISEASE ORAL
     Dosage: UNK
     Route: 061
  7. TRIAMCINOLONE ACETONIDE. [Suspect]
     Active Substance: TRIAMCINOLONE ACETONIDE
     Indication: CHRONIC GRAFT VERSUS HOST DISEASE ORAL
     Dosage: UNK
     Route: 061

REACTIONS (1)
  - Therapy non-responder [Unknown]
